FAERS Safety Report 16141189 (Version 3)
Quarter: 2019Q4

REPORT INFORMATION
  Report Type: Spontaneous
  Country: US (occurrence: US)
  Receive Date: 20190401
  Receipt Date: 20191004
  Transmission Date: 20200122
  Serious: Yes (Hospitalization)
  Sender: FDA-Public Use
  Company Number: US-PFIZER INC-2019126271

PATIENT
  Age: 57 Year
  Sex: Female

DRUGS (4)
  1. LYRICA [Suspect]
     Active Substance: PREGABALIN
     Indication: NEURALGIA
     Dosage: 75 MG, UNK
     Dates: start: 20190321
  2. LYRICA [Suspect]
     Active Substance: PREGABALIN
     Dosage: UNK
  3. VICODIN [Concomitant]
     Active Substance: ACETAMINOPHEN\HYDROCODONE BITARTRATE
     Dosage: UNK UNK, AS NEEDED, (EVERY 4 HRS AS NEEDED)
  4. LYRICA [Suspect]
     Active Substance: PREGABALIN
     Dosage: 150 MG, 2X/DAY
     Dates: start: 20190225

REACTIONS (5)
  - Tremor [Recovered/Resolved]
  - Anxiety [Unknown]
  - Allergic reaction to excipient [Recovered/Resolved]
  - Chest discomfort [Recovered/Resolved]
  - Sedation [Recovered/Resolved]
